FAERS Safety Report 6460973-2 (Version None)
Quarter: 2009Q4

REPORT INFORMATION
  Report Type: 
  Country: None (occurrence: None)
  Receive Date: 20091130
  Receipt Date: 20091123
  Transmission Date: 20100525
  Serious: Yes (Hospitalization)
  Sender: FDA-Public Use
  Company Number: A0815427A

PATIENT
  Age: 10 Year
  Sex: Male
  Weight: 53.2 kg

DRUGS (2)
  1. LAMICTAL XR [Suspect]
     Indication: EPILEPSY
     Dosage: 25MG PER DAY
     Route: 048
     Dates: start: 20090930, end: 20091007
  2. DEPAKOTE [Suspect]
     Indication: DRUG USE FOR UNKNOWN INDICATION
     Dosage: 125MG TWICE PER DAY
     Route: 048

REACTIONS (4)
  - DRUG ADMINISTRATION ERROR [None]
  - PYREXIA [None]
  - RASH [None]
  - VIRAL INFECTION [None]
